FAERS Safety Report 20882297 (Version 6)
Quarter: 2023Q4

REPORT INFORMATION
  Report Type: Report from Study
  Country: JP (occurrence: None)
  Receive Date: 20220527
  Receipt Date: 20231018
  Transmission Date: 20240109
  Serious: Yes (Hospitalization)
  Sender: FDA-Public Use
  Company Number: JP-ROCHE-3103238

PATIENT
  Age: 72 Year
  Sex: Female
  Weight: 45.8 kg

DRUGS (27)
  1. SATRALIZUMAB [Suspect]
     Active Substance: SATRALIZUMAB
     Indication: Neuromyelitis optica spectrum disorder
     Dosage: START DATE OF MOST RECENT DOSE OF STUDY DRUG PRIOR TO AE AND SAE 27/APR/2022 11:58 AM
     Route: 058
     Dates: start: 20210303
  2. DULOXETINE [Concomitant]
     Active Substance: DULOXETINE
     Route: 048
  3. PREGABALIN [Concomitant]
     Active Substance: PREGABALIN
     Route: 048
     Dates: start: 20160428
  4. METHYLCOBALAMIN [Concomitant]
     Active Substance: METHYLCOBALAMIN
     Route: 048
     Dates: start: 20160428
  5. .ALPHA.-TOCOPHEROL ACETATE [Concomitant]
     Active Substance: .ALPHA.-TOCOPHEROL ACETATE
     Route: 048
     Dates: start: 20170906
  6. LANSOPRAZOLE [Concomitant]
     Active Substance: LANSOPRAZOLE
     Route: 048
  7. MAGNESIUM OXIDE [Concomitant]
     Active Substance: MAGNESIUM OXIDE
     Route: 048
  8. BROTIZOLAM [Concomitant]
     Active Substance: BROTIZOLAM
     Route: 048
     Dates: start: 20150331
  9. SODIUM GUALENATE MONOHYDRATE [Concomitant]
     Active Substance: SODIUM GUALENATE MONOHYDRATE
     Route: 061
     Dates: start: 20160330
  10. LOXOPROFEN SODIUM DIHYDRATE [Concomitant]
     Active Substance: LOXOPROFEN SODIUM DIHYDRATE
     Route: 048
     Dates: start: 20160606
  11. LOXOPROFEN SODIUM DIHYDRATE [Concomitant]
     Active Substance: LOXOPROFEN SODIUM DIHYDRATE
     Route: 048
     Dates: start: 20181107
  12. ESFLURBIPROFEN\HERBALS [Concomitant]
     Active Substance: ESFLURBIPROFEN\HERBALS
     Dosage: 1 OTHER
     Route: 061
     Dates: start: 20161028
  13. LUBIPROSTONE [Concomitant]
     Active Substance: LUBIPROSTONE
     Route: 048
     Dates: start: 20181114
  14. HEPARINOID [Concomitant]
     Route: 061
     Dates: start: 20200722
  15. MEPIVACAINE [Concomitant]
     Active Substance: MEPIVACAINE HYDROCHLORIDE
     Route: 030
     Dates: start: 20210127
  16. REBAMIPIDE [Concomitant]
     Active Substance: REBAMIPIDE
     Route: 048
     Dates: start: 20210127
  17. PREDNISOLONE [Concomitant]
     Active Substance: PREDNISOLONE
     Route: 048
     Dates: start: 20211231
  18. FELBINAC [Concomitant]
     Active Substance: FELBINAC
     Route: 061
     Dates: start: 20220312
  19. ACETAMINOPHEN [Concomitant]
     Active Substance: ACETAMINOPHEN
     Indication: Neuromyelitis optica spectrum disorder
     Route: 048
     Dates: start: 20220322
  20. DICLOFENAC SODIUM [Concomitant]
     Active Substance: DICLOFENAC\DICLOFENAC SODIUM
     Indication: Neuromyelitis optica spectrum disorder
     Route: 054
     Dates: start: 20220408
  21. GLYCERIN [Concomitant]
     Active Substance: GLYCERIN
     Indication: Neuromyelitis optica spectrum disorder
     Route: 054
     Dates: start: 20220406
  22. URAPIDIL [Concomitant]
     Active Substance: URAPIDIL
     Indication: Neuromyelitis optica spectrum disorder
     Route: 048
     Dates: start: 20220524
  23. URAPIDIL [Concomitant]
     Active Substance: URAPIDIL
     Indication: Neurogenic bladder
  24. PREDNISOLONE SODIUM SUCCINATE [Concomitant]
     Active Substance: PREDNISOLONE SODIUM SUCCINATE
     Indication: Neuromyelitis optica spectrum disorder
     Route: 042
     Dates: start: 20220521, end: 20220522
  25. CELECOXIB [Concomitant]
     Active Substance: CELECOXIB
     Indication: Neuromyelitis optica spectrum disorder
     Route: 048
     Dates: start: 20220530
  26. SENNA EXTRACT [Concomitant]
     Indication: Constipation
     Route: 048
     Dates: start: 20220521, end: 20220527
  27. SUVOREXANT [Concomitant]
     Active Substance: SUVOREXANT
     Indication: Insomnia
     Route: 048
     Dates: start: 20220526, end: 20220601

REACTIONS (1)
  - Pyelonephritis acute [Recovered/Resolved]

NARRATIVE: CASE EVENT DATE: 20220520
